FAERS Safety Report 5011197-7 (Version None)
Quarter: 2006Q2

REPORT INFORMATION
  Report Type: 
  Country: None (occurrence: None)
  Receive Date: 20060523
  Receipt Date: 20060523
  Transmission Date: 20061013
  Serious: Yes (Death)
  Sender: FDA-Public Use
  Company Number: None

PATIENT
  Age: 85 Year
  Sex: Male

DRUGS (5)
  1. DIGOXIN [Suspect]
     Indication: CARDIAC FAILURE
     Dosage: 0.125 MG DAILY
     Dates: start: 20060206, end: 20060207
  2. PHENYTOIN [Concomitant]
  3. SOTALOL HCL [Concomitant]
  4. VERAPAMIL [Concomitant]
  5. TRAZODONE HCL [Concomitant]

REACTIONS (9)
  - ANOREXIA [None]
  - BLOOD POTASSIUM INCREASED [None]
  - CARDIAC ARREST [None]
  - CONFUSIONAL STATE [None]
  - DECUBITUS ULCER [None]
  - DEHYDRATION [None]
  - DRUG INTERACTION [None]
  - LETHARGY [None]
  - THERAPEUTIC AGENT TOXICITY [None]
